FAERS Safety Report 16213571 (Version 1)
Quarter: 2019Q2

REPORT INFORMATION
  Report Type: Spontaneous
  Country: MX (occurrence: MX)
  Receive Date: 20190418
  Receipt Date: 20190418
  Transmission Date: 20190711
  Serious: Yes (Other)
  Sender: FDA-Public Use
  Company Number: MX-ALVOGEN-2019-ALVOGEN-099465

PATIENT
  Age: 27110 Day
  Sex: Female

DRUGS (4)
  1. ATENOLOL/CHLORTALIDONE [Suspect]
     Active Substance: ATENOLOL\CHLORTHALIDONE
     Indication: HYPERTENSION
     Route: 048
     Dates: start: 20090101
  2. SUCRALFATE. [Concomitant]
     Active Substance: SUCRALFATE
     Indication: GASTRIC HAEMORRHAGE
     Route: 048
     Dates: start: 20190401
  3. ACETYLSALICYLIC ACID [Concomitant]
     Active Substance: ASPIRIN
     Indication: ARTHRITIS
     Route: 048
     Dates: start: 20190301
  4. ESOMEPRAZOLE SODIUM. [Interacting]
     Active Substance: ESOMEPRAZOLE SODIUM
     Indication: GASTRIC HAEMORRHAGE
     Dosage: TWO TIMES A DAY
     Route: 048
     Dates: start: 20190401

REACTIONS (6)
  - Gastric haemorrhage [Unknown]
  - Discomfort [Unknown]
  - Fatigue [Unknown]
  - Arthritis [Unknown]
  - Blood cholesterol increased [Unknown]
  - Drug interaction [Unknown]

NARRATIVE: CASE EVENT DATE: 20190301
